FAERS Safety Report 14813411 (Version 2)
Quarter: 2018Q2

REPORT INFORMATION
  Report Type: Report from Study
  Country: None (occurrence: IT)
  Receive Date: 20180426
  Receipt Date: 20180504
  Transmission Date: 20180711
  Serious: Yes (Other)
  Sender: FDA-Public Use
  Company Number: IT-ABBVIE-18P-083-2330750-00

PATIENT
  Age: 24 Year
  Sex: Female

DRUGS (3)
  1. DEPAKIN [Suspect]
     Active Substance: VALPROATE SODIUM
     Indication: IMPULSIVE BEHAVIOUR
     Route: 048
     Dates: start: 20171220, end: 20171220
  2. DEPAKIN [Suspect]
     Active Substance: VALPROATE SODIUM
     Route: 048
     Dates: start: 20171220, end: 20171220
  3. RIVOTRIL [Suspect]
     Active Substance: CLONAZEPAM
     Indication: IMPULSIVE BEHAVIOUR
     Route: 048
     Dates: start: 20171220, end: 20171220

REACTIONS (3)
  - Personality disorder [Not Recovered/Not Resolved]
  - Intentional overdose [Unknown]
  - Impulsive behaviour [Not Recovered/Not Resolved]

NARRATIVE: CASE EVENT DATE: 20171220
